FAERS Safety Report 24652003 (Version 4)
Quarter: 2025Q3

REPORT INFORMATION
  Report Type: Report from Study
  Country: US (occurrence: US)
  Receive Date: 20241122
  Receipt Date: 20250718
  Transmission Date: 20251020
  Serious: Yes (Other)
  Sender: TAKEDA
  Company Number: US-TAKEDA-2024TUS108183

PATIENT
  Age: 66 Year
  Sex: Male
  Weight: 53.923 kg

DRUGS (5)
  1. BRIGATINIB [Suspect]
     Active Substance: BRIGATINIB
     Indication: Metastases to the mediastinum
     Dosage: 180 MILLIGRAM, QD
     Dates: start: 20241121
  2. BRIGATINIB [Suspect]
     Active Substance: BRIGATINIB
     Indication: Hepatic cancer
     Dosage: 30 MILLIGRAM, QD
  3. BRIGATINIB [Suspect]
     Active Substance: BRIGATINIB
     Dosage: 90 MILLIGRAM, QD
  4. BRIGATINIB [Suspect]
     Active Substance: BRIGATINIB
     Dosage: 30 MILLIGRAM, QD
  5. BRIGATINIB [Suspect]
     Active Substance: BRIGATINIB
     Dosage: 120 MILLIGRAM, QD
     Dates: end: 20250711

REACTIONS (4)
  - Metastases to the mediastinum [Unknown]
  - Hepatitis [Unknown]
  - Product prescribing issue [Unknown]
  - Oropharyngeal pain [Unknown]

NARRATIVE: CASE EVENT DATE: 20250711
